FAERS Safety Report 7948480-9 (Version None)
Quarter: 2011Q4

REPORT INFORMATION
  Report Type: 
  Country: None (occurrence: None)
  Receive Date: 20111130
  Receipt Date: 20111129
  Transmission Date: 20120403
  Serious: Yes (Death, Hospitalization)
  Sender: FDA-Public Use
  Company Number: US-BAYER-2011-114498

PATIENT
  Age: 82 Year

DRUGS (1)
  1. NEXAVAR [Suspect]
     Indication: HEPATIC NEOPLASM MALIGNANT
     Dosage: UNK

REACTIONS (5)
  - DEATH [None]
  - VARICES OESOPHAGEAL [None]
  - HEPATIC CIRRHOSIS [None]
  - BLOOD BILIRUBIN INCREASED [None]
  - HAEMOGLOBIN ABNORMAL [None]
